FAERS Safety Report 11402828 (Version 1)
Quarter: 2015Q3

REPORT INFORMATION
  Report Type: Spontaneous
  Country: US (occurrence: US)
  Receive Date: 20150821
  Receipt Date: 20150821
  Transmission Date: 20151125
  Serious: No
  Sender: FDA-Public Use
  Company Number: US-ROCHE-1343059

PATIENT
  Sex: Male

DRUGS (3)
  1. RIBAVIRIN. [Suspect]
     Active Substance: RIBAVIRIN
     Indication: CHRONIC HEPATITIS C
     Route: 065
     Dates: start: 20131008
  2. PEGASYS [Suspect]
     Active Substance: PEGINTERFERON ALFA-2A
     Indication: CHRONIC HEPATITIS C
     Route: 058
     Dates: start: 20131008
  3. TELAPREVIR [Suspect]
     Active Substance: TELAPREVIR
     Indication: CHRONIC HEPATITIS C
     Dosage: 2 PILLS
     Route: 065
     Dates: start: 20131008

REACTIONS (13)
  - Accidental exposure to product [Unknown]
  - Pruritus [Unknown]
  - Dry skin [Unknown]
  - Haemorrhoids [Unknown]
  - Haematochezia [Unknown]
  - Haemoglobin decreased [Unknown]
  - Weight decreased [Unknown]
  - Ageusia [Unknown]
  - Conjunctivitis [Unknown]
  - Dizziness [Unknown]
  - Decreased appetite [Unknown]
  - Device malfunction [Unknown]
  - Rash [Recovering/Resolving]
